FAERS Safety Report 6017151-0 (Version None)
Quarter: 2008Q4

REPORT INFORMATION
  Report Type: 
  Country: None (occurrence: None)
  Receive Date: 20081223
  Receipt Date: 20081212
  Transmission Date: 20090506
  Serious: Yes (Death)
  Sender: FDA-Public Use
  Company Number: ES-BRISTOL-MYERS SQUIBB COMPANY-14447866

PATIENT

DRUGS (8)
  1. ATAZANAVIR [Suspect]
     Indication: ANTIRETROVIRAL THERAPY
  2. STAVUDINE [Suspect]
     Indication: ANTIRETROVIRAL THERAPY
  3. RITONAVIR [Suspect]
     Indication: ANTIRETROVIRAL THERAPY
  4. TENOFOVIR DISOPROXIL FUMARATE [Suspect]
     Indication: ANTIRETROVIRAL THERAPY
  5. LAMIVUDINE [Suspect]
     Indication: ANTIRETROVIRAL THERAPY
  6. ABACAVIR SULFATE [Suspect]
     Indication: ANTIRETROVIRAL THERAPY
  7. EMTRICITABINE [Suspect]
     Indication: ANTIRETROVIRAL THERAPY
  8. ZIDOVUDINE [Suspect]
     Indication: ANTIRETROVIRAL THERAPY

REACTIONS (1)
  - MYOCARDIAL INFARCTION [None]
